FAERS Safety Report 19829620 (Version 1)
Quarter: 2021Q3

REPORT INFORMATION
  Report Type: Spontaneous
  Country: NL (occurrence: NL)
  Receive Date: 20210914
  Receipt Date: 20210914
  Transmission Date: 20211014
  Serious: Yes (Other)
  Sender: FDA-Public Use
  Company Number: NL-MYLANLABS-2021M1062453

PATIENT
  Age: 133 Month
  Sex: Female

DRUGS (14)
  1. ISOTRETINOIN. [Suspect]
     Active Substance: ISOTRETINOIN
     Dosage: 160 MG/M2, OD ON 14 CONSECUTIVE DAYS (COURSE 4)
     Route: 065
  2. ISOTRETINOIN. [Suspect]
     Active Substance: ISOTRETINOIN
     Dosage: 160 MG/M2, OD ON 14 CONSECUTIVE DAYS (COURSE 6)
     Route: 065
  3. QARZIBA [Suspect]
     Active Substance: DINUTUXIMAB BETA
     Dosage: 20 MG/M2 GIVEN BY 8 HOUR INFUSION (MAX 16 HOURS) ON 5 CONSECUTIVE DAYS, COURSE 4
     Route: 042
  4. SARGRAMOSTIM [Suspect]
     Active Substance: SARGRAMOSTIM
     Dosage: 250 MICROGRAM/SQ. METER, OD ON 14 CONSECUTIVE DAYS BY SUBCUTANEOUS ROUTE (COURSE 1)
     Route: 058
  5. ISOTRETINOIN. [Suspect]
     Active Substance: ISOTRETINOIN
     Indication: NEUROBLASTOMA
     Dosage: 160 MG/M2, OD ON 14 CONSECUTIVE DAYS (COURSE 5)160 MILLIGRAM/SQ. METER, QD
     Route: 065
  6. ISOTRETINOIN. [Suspect]
     Active Substance: ISOTRETINOIN
     Dosage: 160 MG/M2, OD ON 14 CONSECUTIVE DAYS (COURSE 2)
     Route: 065
  7. QARZIBA [Suspect]
     Active Substance: DINUTUXIMAB BETA
     Dosage: 20 MG/M2 GIVEN BY 8 HOUR INFUSION (MAX 16 HOURS) ON 5 CONSECUTIVE DAYS, COURSE 5
     Route: 042
  8. ISOTRETINOIN. [Suspect]
     Active Substance: ISOTRETINOIN
     Dosage: 160 MILLIGRAM/SQ. METER, QD (160 MG/M2, OD ON 14 CONSECUTIVE DAYS (COURSE 3))
     Route: 065
  9. SARGRAMOSTIM [Suspect]
     Active Substance: SARGRAMOSTIM
     Dosage: 250 MICROGRAM/SQ. METER, OD ON 14 CONSECUTIVE DAYS BY SUBCUTANEOUS ROUTE (COURSE 3)
     Route: 058
  10. ISOTRETINOIN. [Suspect]
     Active Substance: ISOTRETINOIN
     Dosage: 160 MILLIGRAM/SQ. METER, QD (160 MG/M2, OD ON 14 CONSECUTIVE DAYS (COURSE 3))
     Route: 065
  11. QARZIBA [Suspect]
     Active Substance: DINUTUXIMAB BETA
     Dosage: 20 MG/M2 GIVEN BY 8 HOUR INFUSION (MAX 16 HOURS) ON 5 CONSECUTIVE DAYS, COURSE 3
     Route: 042
  12. QARZIBA [Suspect]
     Active Substance: DINUTUXIMAB BETA
     Indication: NEUROBLASTOMA
     Dosage: 20 MG/M2 GIVEN BY 8 HOUR INFUSION (MAX 16 HOURS) ON 5 CONSECUTIVE DAYS, COURSE 1
     Route: 042
  13. QARZIBA [Suspect]
     Active Substance: DINUTUXIMAB BETA
     Dosage: 20 MG/M2 GIVEN BY 8 HOUR INFUSION (MAX 16 HOURS) ON 5 CONSECUTIVE DAYS, COURSE 2
     Route: 042
  14. SARGRAMOSTIM [Suspect]
     Active Substance: SARGRAMOSTIM
     Indication: NEUROBLASTOMA
     Dosage: 250 MICROGRAM/SQ. METER, OD ON 14 CONSECUTIVE DAYS BY SUBCUTANEOUS ROUTE (COURSE 5)
     Route: 058

REACTIONS (4)
  - Alanine aminotransferase abnormal [Unknown]
  - Pain [Unknown]
  - Aspartate aminotransferase abnormal [Unknown]
  - Device related bacteraemia [Unknown]
